FAERS Safety Report 5966546-X (Version None)
Quarter: 2008Q4

REPORT INFORMATION
  Report Type: 
  Country: None (occurrence: None)
  Receive Date: 20081119
  Receipt Date: 20080826
  Transmission Date: 20090506
  Serious: No
  Sender: FDA-Public Use
  Company Number: WAES 0702USA03760

PATIENT
  Age: 38 Year
  Sex: Female

DRUGS (2)
  1. JANUVIA [Suspect]
     Indication: TYPE 2 DIABETES MELLITUS
     Dosage: 100 MG/DAILY/PO ; 100 MG/DAILY/PO
     Route: 048
     Dates: start: 20070123
  2. METFORMIN HCL [Concomitant]

REACTIONS (4)
  - BLOOD GLUCOSE ABNORMAL [None]
  - DRUG EXPOSURE DURING PREGNANCY [None]
  - ECZEMA [None]
  - NO ADVERSE EVENT [None]
